FAERS Safety Report 9596940 (Version 2)
Quarter: 2013Q4

REPORT INFORMATION
  Report Type: Spontaneous
  Country: FR (occurrence: FR)
  Receive Date: 20131004
  Receipt Date: 20131105
  Transmission Date: 20140711
  Serious: Yes (Disabling)
  Sender: FDA-Public Use
  Company Number: FR-ROCHE-1285110

PATIENT
  Age: 71 Year
  Sex: Female

DRUGS (4)
  1. HERCEPTIN [Suspect]
     Indication: HER-2 POSITIVE BREAST CANCER
     Route: 065
     Dates: start: 201306, end: 201307
  2. HERCEPTIN [Suspect]
     Route: 065
  3. HERCEPTIN [Suspect]
     Dosage: 2 MG/KG
     Route: 042
     Dates: start: 201307, end: 201307
  4. AROMASIN [Concomitant]

REACTIONS (2)
  - Deafness bilateral [Not Recovered/Not Resolved]
  - Malaise [Recovered/Resolved]
